FAERS Safety Report 11872374 (Version 1)
Quarter: 2015Q4

REPORT INFORMATION
  Report Type: Spontaneous
  Country: US (occurrence: US)
  Receive Date: 20151228
  Receipt Date: 20151228
  Transmission Date: 20160305
  Serious: No
  Sender: FDA-Public Use
  Company Number: US-LEO PHARMA-239257

PATIENT
  Sex: Female

DRUGS (3)
  1. PICATO [Suspect]
     Active Substance: INGENOL MEBUTATE
     Indication: ERYTHEMA
  2. PICATO [Suspect]
     Active Substance: INGENOL MEBUTATE
     Indication: HAEMORRHAGE
  3. PICATO [Suspect]
     Active Substance: INGENOL MEBUTATE
     Indication: EXCESSIVE GRANULATION TISSUE
     Route: 061
     Dates: start: 20151220, end: 20151220

REACTIONS (6)
  - Application site irritation [Not Recovered/Not Resolved]
  - Wrong technique in product usage process [Unknown]
  - Product use issue [Unknown]
  - Application site erythema [Not Recovered/Not Resolved]
  - Application site pain [Not Recovered/Not Resolved]
  - Incorrect drug administration duration [Unknown]

NARRATIVE: CASE EVENT DATE: 20151220
